FAERS Safety Report 16650174 (Version 1)
Quarter: 2019Q3

REPORT INFORMATION
  Report Type: Spontaneous
  Country: CH (occurrence: CH)
  Receive Date: 20190731
  Receipt Date: 20190731
  Transmission Date: 20191004
  Serious: Yes (Hospitalization, Other)
  Sender: FDA-Public Use
  Company Number: CH-ROCHE-2201626

PATIENT
  Age: 67 Year
  Sex: Male
  Weight: 73 kg

DRUGS (4)
  1. MABTHERA [Suspect]
     Active Substance: RITUXIMAB
     Indication: OFF LABEL USE
  2. OCREVUS [Suspect]
     Active Substance: OCRELIZUMAB
     Indication: OFF LABEL USE
  3. OCREVUS [Suspect]
     Active Substance: OCRELIZUMAB
     Indication: ENCEPHALITIS AUTOIMMUNE
     Route: 042
     Dates: start: 201812, end: 201812
  4. MABTHERA [Suspect]
     Active Substance: RITUXIMAB
     Indication: ENCEPHALITIS AUTOIMMUNE
     Route: 042
     Dates: start: 20181015, end: 20181015

REACTIONS (4)
  - Encephalitis autoimmune [Not Recovered/Not Resolved]
  - Off label use [Unknown]
  - Hypersensitivity [Recovered/Resolved]
  - Intentional product use issue [Unknown]

NARRATIVE: CASE EVENT DATE: 20181015
